FAERS Safety Report 7208539-0 (Version None)
Quarter: 2011Q1

REPORT INFORMATION
  Report Type: 
  Country: None (occurrence: None)
  Receive Date: 20110104
  Receipt Date: 20101116
  Transmission Date: 20110831
  Serious: Yes (Hospitalization)
  Sender: FDA-Public Use
  Company Number: US-BAYER-201019913NA

PATIENT
  Sex: Female
  Weight: 79.819 kg

DRUGS (6)
  1. YASMIN [Suspect]
     Indication: PREMENSTRUAL SYNDROME
     Dosage: UNK
     Dates: start: 20080301, end: 20080401
  2. IBUPROFEN [Concomitant]
     Indication: PAIN
     Dosage: UNK
     Dates: start: 20040101
  3. YASMIN [Suspect]
     Indication: CONTRACEPTION
     Dosage: UNK UNK, UNK
     Route: 048
     Dates: start: 20040701, end: 20050701
  4. PROTONIX [Concomitant]
     Dosage: 40 MG, QD
     Route: 048
     Dates: start: 20090119
  5. LEVOTHYROXINE [Concomitant]
     Dosage: 150 A?G, QD
     Dates: start: 19980101
  6. SYNTHROID [Concomitant]
     Dosage: 150 A?G, QD

REACTIONS (4)
  - PULMONARY INFARCTION [None]
  - DYSPNOEA [None]
  - PULMONARY EMBOLISM [None]
  - CHEST PAIN [None]
